FAERS Safety Report 10798011 (Version 3)
Quarter: 2015Q1

REPORT INFORMATION
  Report Type: Spontaneous
  Country: US (occurrence: US)
  Receive Date: 20150216
  Receipt Date: 20150316
  Transmission Date: 20150721
  Serious: No
  Sender: FDA-Public Use
  Company Number: US-PFIZER INC-2015056445

PATIENT
  Age: 70 Year
  Sex: Male
  Weight: 62 kg

DRUGS (16)
  1. CYTARABINE. [Concomitant]
     Active Substance: CYTARABINE
     Indication: MYELODYSPLASTIC SYNDROME
     Dosage: UNK
  2. CLADRIBINE. [Concomitant]
     Active Substance: CLADRIBINE
     Indication: MYELODYSPLASTIC SYNDROME
     Dosage: UNK
  3. COMPAZINE [Concomitant]
     Active Substance: PROCHLORPERAZINE MALEATE
     Indication: NAUSEA
     Dosage: UNK (10 MG, 1 TAB(S), PO, Q6HR, PRN: AS NEEDED)
     Route: 048
  4. COMPAZINE [Concomitant]
     Active Substance: PROCHLORPERAZINE MALEATE
     Indication: VOMITING
  5. MITOXANTRONE HYDROCHLORIDE. [Concomitant]
     Active Substance: MITOXANTRONE HYDROCHLORIDE
     Indication: MYELODYSPLASTIC SYNDROME
     Dosage: UNK
  6. SENOKOT-S [Concomitant]
     Active Substance: DOCUSATE SODIUM\SENNOSIDES
     Indication: CONSTIPATION
     Dosage: UNK, 2X/DAY (2 EA, PO, Q 12 HR, PRN)
     Route: 048
  7. LEVOFLOXACIN. [Concomitant]
     Active Substance: LEVOFLOXACIN
     Indication: INFECTION PROPHYLAXIS
     Dosage: 500 MG, 1X/DAY
     Route: 048
  8. CYANOCOBALAMINE [Concomitant]
     Dosage: 5000 MG, DAILY
     Route: 048
  9. TRIAMCINOLONE [Concomitant]
     Active Substance: TRIAMCINOLONE
     Dosage: UNK, 3X/DAY [1 APPLICATION(S), TID]
     Route: 061
  10. VFEND [Suspect]
     Active Substance: VORICONAZOLE
     Indication: LUNG INFECTION
     Dosage: 250 MG, 2X/DAY
     Route: 048
     Dates: start: 20141220, end: 20150211
  11. AMBISOME [Concomitant]
     Active Substance: AMPHOTERICIN B
     Indication: LUNG INFECTION
     Dosage: UNK
  12. DONEPEZIL [Concomitant]
     Active Substance: DONEPEZIL
     Indication: DEMENTIA
     Dosage: 10 MG, 1X/DAY (10 MG, 1 TAB BEDTIME)
     Route: 048
  13. VFEND [Suspect]
     Active Substance: VORICONAZOLE
     Indication: MYELODYSPLASTIC SYNDROME
  14. POSACONAZOLE [Concomitant]
     Active Substance: POSACONAZOLE
     Dosage: 400 MG, 2X/DAY (400 MG, 10 ML, PO, BID FOR 30 DAY(S))
     Route: 048
  15. ACYCLOVIR. [Suspect]
     Active Substance: ACYCLOVIR
     Indication: ANTIVIRAL TREATMENT
     Dosage: 400 MG, 2X/DAY
     Route: 048
  16. FILGRASTIM [Concomitant]
     Active Substance: FILGRASTIM
     Indication: MYELODYSPLASTIC SYNDROME
     Dosage: UNK

REACTIONS (9)
  - Rash macular [Recovering/Resolving]
  - Dry skin [Unknown]
  - Eye swelling [Not Recovered/Not Resolved]
  - Swelling face [Recovered/Resolved]
  - Skin exfoliation [Unknown]
  - Erythema [Unknown]
  - Face oedema [Unknown]
  - Rash [Unknown]
  - Photosensitivity reaction [Unknown]

NARRATIVE: CASE EVENT DATE: 20150205
